FAERS Safety Report 21993864 (Version 2)
Quarter: 2023Q2

REPORT INFORMATION
  Report Type: Report from Study
  Country: US (occurrence: US)
  Receive Date: 20230215
  Receipt Date: 20230619
  Transmission Date: 20230721
  Serious: Yes (Hospitalization, Other)
  Sender: FDA-Public Use
  Company Number: US-002147023-NVSC2023US030359

PATIENT
  Age: 69 Year
  Sex: Female

DRUGS (3)
  1. SANDOSTATIN LAR DEPOT [Suspect]
     Active Substance: OCTREOTIDE ACETATE
     Indication: Product used for unknown indication
     Dosage: 20 MG
     Route: 065
  2. SANDOSTATIN LAR DEPOT [Suspect]
     Active Substance: OCTREOTIDE ACETATE
  3. SANDOSTATIN LAR DEPOT [Suspect]
     Active Substance: OCTREOTIDE ACETATE

REACTIONS (9)
  - Haemorrhage [Unknown]
  - Gastrointestinal haemorrhage [Unknown]
  - Weight decreased [Unknown]
  - Feeding disorder [Unknown]
  - Full blood count decreased [Unknown]
  - Gastrointestinal pain [Unknown]
  - Abdominal pain [Unknown]
  - Faeces discoloured [Unknown]
  - Dyspnoea [Unknown]
